FAERS Safety Report 10043475 (Version 1)
Quarter: 2014Q1

REPORT INFORMATION
  Report Type: Spontaneous
  Country: US (occurrence: US)
  Receive Date: 20140328
  Receipt Date: 20140328
  Transmission Date: 20141002
  Serious: Yes (Other)
  Sender: FDA-Public Use
  Company Number: US-GLENMARK GENERICS INC.-2014GMK009058

PATIENT
  Sex: Female

DRUGS (1)
  1. NORGESTIMATE + EE TABLETS (7-7-7) [Suspect]
     Indication: ORAL CONTRACEPTION
     Dosage: UNK
     Route: 048

REACTIONS (2)
  - Unintended pregnancy [Unknown]
  - Product packaging issue [Unknown]
